FAERS Safety Report 5743490-4 (Version None)
Quarter: 2008Q2

REPORT INFORMATION
  Report Type: 
  Country: None (occurrence: None)
  Receive Date: 20080520
  Receipt Date: 20080509
  Transmission Date: 20081010
  Serious: Yes (Hospitalization)
  Sender: FDA-Public Use
  Company Number: US-JNJFOC-20080403969

PATIENT
  Sex: Female

DRUGS (5)
  1. DURAGESIC-100 [Suspect]
     Route: 062
  2. DURAGESIC-100 [Suspect]
     Indication: PAIN
     Dosage: 25UG/HR AND 12.5 UG/HR
     Route: 062
  3. COUMADIN [Suspect]
     Indication: CARDIAC VALVE PROSTHESIS USER
     Route: 048
  4. COUMADIN [Suspect]
     Indication: ANTICOAGULANT THERAPY
     Route: 048
  5. FENTANYL TRANSDERMAL SYSTEM [Concomitant]
     Indication: PAIN
     Route: 062

REACTIONS (10)
  - APHONIA [None]
  - APPLICATION SITE BRUISING [None]
  - APPLICATION SITE ERYTHEMA [None]
  - BRONCHITIS [None]
  - DRUG ADMINISTERED AT INAPPROPRIATE SITE [None]
  - MENTAL DISORDER [None]
  - MIGRAINE [None]
  - PAIN [None]
  - PHARMACEUTICAL PRODUCT COMPLAINT [None]
  - WRONG TECHNIQUE IN DRUG USAGE PROCESS [None]
